FAERS Safety Report 9792527 (Version 1)
Quarter: 2014Q1

REPORT INFORMATION
  Report Type: Spontaneous
  Country: US (occurrence: US)
  Receive Date: 20140102
  Receipt Date: 20140102
  Transmission Date: 20141002
  Serious: No
  Sender: FDA-Public Use
  Company Number: US-SANOFI-AVENTIS-2013SA093028

PATIENT
  Sex: Female

DRUGS (2)
  1. AUBAGIO [Suspect]
     Route: 065
  2. TENORETIC [Concomitant]

REACTIONS (5)
  - Flushing [Unknown]
  - Lacrimation increased [Unknown]
  - Paranasal sinus hypersecretion [Unknown]
  - Pruritus [Unknown]
  - Erythema [Unknown]
